FAERS Safety Report 13490470 (Version 1)
Quarter: 2017Q2

REPORT INFORMATION
  Report Type: Spontaneous
  Country: FR (occurrence: FR)
  Receive Date: 20170427
  Receipt Date: 20170427
  Transmission Date: 20170830
  Serious: Yes (Hospitalization)
  Sender: FDA-Public Use
  Company Number: FR-ROCHE-1924277

PATIENT
  Age: 51 Year
  Sex: Female

DRUGS (6)
  1. XELODA [Suspect]
     Active Substance: CAPECITABINE
     Indication: BREAST CANCER METASTATIC
     Route: 048
     Dates: start: 201510
  2. XGEVA [Concomitant]
     Active Substance: DENOSUMAB
  3. CLASTOBAN [Concomitant]
     Active Substance: CLODRONIC ACID
     Route: 065
     Dates: start: 201608
  4. XELODA [Suspect]
     Active Substance: CAPECITABINE
     Route: 048
     Dates: start: 20170130, end: 20170212
  5. KARDEGIC [Concomitant]
     Active Substance: ASPIRIN LYSINE
     Indication: CEREBROVASCULAR ACCIDENT
     Route: 048
     Dates: start: 20160216
  6. XELODA [Suspect]
     Active Substance: CAPECITABINE
     Dosage: DURING SECOND CYCLE
     Route: 048
     Dates: start: 20151117

REACTIONS (1)
  - Transient ischaemic attack [Recovered/Resolved]

NARRATIVE: CASE EVENT DATE: 20170211
